FAERS Safety Report 18375216 (Version 1)
Quarter: 2020Q4

REPORT INFORMATION
  Report Type: Report from Study
  Country: RO (occurrence: RO)
  Receive Date: 20201013
  Receipt Date: 20201013
  Transmission Date: 20210114
  Serious: Yes (Hospitalization, Other)
  Sender: FDA-Public Use
  Company Number: RO-PBT-000002

PATIENT

DRUGS (7)
  1. PREDNISONE. [Suspect]
     Active Substance: PREDNISONE
     Indication: PROPHYLAXIS AGAINST TRANSPLANT REJECTION
     Dosage: 5 MG/DAY
     Route: 065
  2. OMBITASVIR [Interacting]
     Active Substance: OMBITASVIR
     Indication: CHRONIC HEPATITIS C
     Dosage: 12.5 MG, TWICE DAILY FOR 12 WEEKS
     Route: 048
  3. TACROLIMUS. [Interacting]
     Active Substance: TACROLIMUS
     Indication: PROPHYLAXIS AGAINST TRANSPLANT REJECTION
     Dosage: 2 MG/WEEK
     Route: 065
  4. MYCOPHENOLATE MOFETIL. [Suspect]
     Active Substance: MYCOPHENOLATE MOFETIL
     Indication: PROPHYLAXIS AGAINST TRANSPLANT REJECTION
     Dosage: 1 MG/DAY
     Route: 065
  5. RITONAVIR. [Interacting]
     Active Substance: RITONAVIR
     Indication: CHRONIC HEPATITIS C
     Dosage: 50 MG, TWICE DAILY FOR 12 WEEKS
     Route: 065
  6. PARITAPREVIR [Interacting]
     Active Substance: PARITAPREVIR
     Indication: CHRONIC HEPATITIS C
     Dosage: 75 MG, TWICE DAILY FOR 12 WEEKS
     Route: 048
  7. TACROLIMUS. [Suspect]
     Active Substance: TACROLIMUS
     Indication: PROPHYLAXIS AGAINST TRANSPLANT REJECTION
     Dosage: 2 MG/DAY
     Route: 065

REACTIONS (5)
  - Chronic kidney disease [Unknown]
  - Drug interaction [Unknown]
  - Fibrosis [Unknown]
  - Drug level increased [Unknown]
  - Hyperglycaemia [Unknown]
